FAERS Safety Report 6560088-9 (Version None)
Quarter: 2010Q1

REPORT INFORMATION
  Report Type: 
  Country: None (occurrence: None)
  Receive Date: 20100129
  Receipt Date: 20090916
  Transmission Date: 20100710
  Serious: No
  Sender: FDA-Public Use
  Company Number: US-ABBOTT-09P-163-0598110-00

PATIENT
  Sex: Female
  Weight: 127.12 kg

DRUGS (3)
  1. HUMIRA [Suspect]
     Indication: RHEUMATOID ARTHRITIS
     Route: 058
     Dates: start: 20060101
  2. DIOVAN [Concomitant]
     Indication: HYPERTENSION
     Dosage: LOW DOSE
     Route: 048
  3. OMEPRAZOLE [Concomitant]
     Indication: GASTROOESOPHAGEAL REFLUX DISEASE
     Route: 048

REACTIONS (3)
  - DRUG DOSE OMISSION [None]
  - NASOPHARYNGITIS [None]
  - OROPHARYNGEAL PAIN [None]
